FAERS Safety Report 9725504 (Version 2)
Quarter: 2013Q4

REPORT INFORMATION
  Report Type: Spontaneous
  Country: JP (occurrence: JP)
  Receive Date: 20131203
  Receipt Date: 20131210
  Transmission Date: 20140711
  Serious: No
  Sender: FDA-Public Use
  Company Number: PHHY2013JP139607

PATIENT
  Age: 79 Year
  Sex: Female

DRUGS (2)
  1. EXELON PATCH [Suspect]
     Dosage: UNK UKN, UNK
     Route: 062
     Dates: start: 20131118
  2. EXELON PATCH [Suspect]
     Dosage: 4.5MG DAILY CUT IN HALF
     Route: 062

REACTIONS (1)
  - Wrong technique in drug usage process [Unknown]
